FAERS Safety Report 11161289 (Version 1)
Quarter: 2015Q2

REPORT INFORMATION
  Report Type: Spontaneous
  Country: US (occurrence: US)
  Receive Date: 20150604
  Receipt Date: 20150604
  Transmission Date: 20150821
  Serious: No
  Sender: FDA-Public Use
  Company Number: US-SA-2014SA081174

PATIENT
  Age: 57 Year
  Sex: Male
  Weight: 300 kg

DRUGS (3)
  1. HUMALOG [Concomitant]
     Active Substance: INSULIN LISPRO
  2. LANTUS SOLOSTAR [Suspect]
     Active Substance: INSULIN GLARGINE
     Indication: TYPE 2 DIABETES MELLITUS
     Dosage: DOSE:44 UNIT(S)
     Route: 065
     Dates: start: 201403
  3. SOLOSTAR [Concomitant]
     Active Substance: DEVICE
     Dates: start: 201403

REACTIONS (4)
  - Feeling abnormal [Recovered/Resolved]
  - Hyperhidrosis [Recovered/Resolved]
  - Blood glucose decreased [Unknown]
  - Asthenia [Unknown]
